FAERS Safety Report 6854256-6 (Version None)
Quarter: 2010Q3

REPORT INFORMATION
  Report Type: 
  Country: None (occurrence: None)
  Receive Date: 20100717
  Receipt Date: 20071229
  Transmission Date: 20110219
  Serious: No
  Sender: FDA-Public Use
  Company Number: US-PFIZER INC-2008001275

PATIENT
  Sex: Female

DRUGS (5)
  1. CHANTIX [Suspect]
     Indication: SMOKING CESSATION THERAPY
  2. CORTICOSTEROIDS [Suspect]
  3. IRON [Concomitant]
  4. CALCIUM [Concomitant]
  5. VITAMINS [Concomitant]

REACTIONS (2)
  - DYSGEUSIA [None]
  - INCREASED APPETITE [None]
